FAERS Safety Report 6058340-9 (Version None)
Quarter: 2009Q1

REPORT INFORMATION
  Report Type: 
  Country: None (occurrence: None)
  Receive Date: 20090130
  Receipt Date: 20090119
  Transmission Date: 20090719
  Serious: Yes (Hospitalization)
  Sender: FDA-Public Use
  Company Number: US-BRISTOL-MYERS SQUIBB COMPANY-14484562

PATIENT
  Age: 78 Year
  Sex: Male
  Weight: 88 kg

DRUGS (6)
  1. CETUXIMAB [Suspect]
     Indication: PROSTATE CANCER
     Dosage: DOSE FREQUENCY: ONCE
     Route: 042
     Dates: start: 20090113, end: 20090113
  2. NOVANTRONE [Suspect]
     Indication: PROSTATE CANCER
     Route: 042
     Dates: start: 20090113, end: 20090113
  3. PREDNISONE [Concomitant]
     Indication: PROSTATE CANCER
     Route: 048
     Dates: start: 20090101, end: 20090116
  4. MULTI-VITAMIN [Concomitant]
     Indication: VITAMIN SUPPLEMENTATION
     Route: 048
     Dates: start: 19990101
  5. DARVOCET [Concomitant]
     Indication: PAIN
     Dosage: DOSAGE: Q4-6H
     Route: 048
     Dates: start: 20080401
  6. CHLORELLA [Concomitant]
     Indication: SUPPLEMENTATION THERAPY
     Route: 048
     Dates: start: 19990101

REACTIONS (1)
  - MYOCARDIAL INFARCTION [None]
